FAERS Safety Report 24038900 (Version 1)
Quarter: 2024Q3

REPORT INFORMATION
  Report Type: Spontaneous
  Country: CN (occurrence: CN)
  Receive Date: 20240702
  Receipt Date: 20240702
  Transmission Date: 20241017
  Serious: Yes (Hospitalization)
  Sender: UCB
  Company Number: None

PATIENT
  Age: 50 Year
  Sex: Female
  Weight: 55 kg

DRUGS (4)
  1. KEPPRA [Suspect]
     Active Substance: LEVETIRACETAM
     Indication: Epilepsy
     Dosage: 0.5 GRAM, 3X/DAY (TID)
     Route: 048
     Dates: start: 20190308, end: 20240620
  2. ESZOPICLONE [Concomitant]
     Active Substance: ESZOPICLONE
     Indication: Sleep disorder
     Dosage: 3.000 MILLIGRAM, ONCE DAILY (QD)
     Route: 048
     Dates: start: 20230220, end: 20240620
  3. PERAMPANEL [Concomitant]
     Active Substance: PERAMPANEL
     Indication: Epilepsy
     Dosage: 2.000 MILLIGRAM, ONCE DAILY (QD)
     Route: 048
     Dates: start: 20240518, end: 20240620
  4. OXCARBAZEPINE [Concomitant]
     Active Substance: OXCARBAZEPINE
     Indication: Epilepsy
     Dosage: 450.000 MILLIGRAM, 3X/DAY (TID)
     Route: 048
     Dates: start: 20240408, end: 20240620

REACTIONS (4)
  - Dysphoria [Recovering/Resolving]
  - Toxicity to various agents [Unknown]
  - Overdose [Unknown]
  - Off label use [Unknown]

NARRATIVE: CASE EVENT DATE: 20190308
